FAERS Safety Report 17862226 (Version 1)
Quarter: 2020Q2

REPORT INFORMATION
  Report Type: Spontaneous
  Country: US (occurrence: US)
  Receive Date: 20200604
  Receipt Date: 20200604
  Transmission Date: 20200714
  Serious: No
  Sender: FDA-Public Use
  Company Number: US-AVEDRO-AVE-2019-0527-AE

PATIENT
  Age: 38 Year
  Sex: Male

DRUGS (4)
  1. NUMBING DROPS [Concomitant]
     Active Substance: UNSPECIFIED INGREDIENT
     Indication: APPLICATION SITE ANAESTHESIA
     Route: 047
     Dates: start: 201907, end: 201907
  2. NUMBING DROPS [Concomitant]
     Active Substance: UNSPECIFIED INGREDIENT
     Route: 047
     Dates: start: 201911, end: 201911
  3. AVEDRO CROSS-LINKING PRODUCT(S), UNSPECIFIED [Suspect]
     Active Substance: RIBOFLAVIN 5^-PHOSPHATE SODIUM
     Indication: KERATOCONUS
     Route: 047
     Dates: start: 201907, end: 201907
  4. AVEDRO CROSS-LINKING PRODUCT(S), UNSPECIFIED [Suspect]
     Active Substance: RIBOFLAVIN 5^-PHOSPHATE SODIUM
     Indication: KERATOCONUS
     Route: 047
     Dates: start: 201911, end: 201911

REACTIONS (2)
  - Ocular discomfort [Recovered/Resolved]
  - Eye pain [Recovered/Resolved]

NARRATIVE: CASE EVENT DATE: 201907
